FAERS Safety Report 18578843 (Version 1)
Quarter: 2020Q4

REPORT INFORMATION
  Report Type: Spontaneous
  Country: US (occurrence: US)
  Receive Date: 20201202
  Receipt Date: 20201202
  Transmission Date: 20210114
  Serious: No
  Sender: FDA-Public Use
  Company Number: None

PATIENT
  Age: 76 Year
  Sex: Female
  Weight: 79.2 kg

DRUGS (12)
  1. FLUOXETINE [Concomitant]
     Active Substance: FLUOXETINE HYDROCHLORIDE
  2. IBRANCE [Suspect]
     Active Substance: PALBOCICLIB
     Indication: BREAST MASS
     Route: 048
     Dates: start: 20200430
  3. SENOKOT-S [Concomitant]
     Active Substance: DOCUSATE SODIUM\SENNOSIDES
  4. TRAZODONE [Concomitant]
     Active Substance: TRAZODONE HYDROCHLORIDE
  5. MOVANTIK [Concomitant]
     Active Substance: NALOXEGOL OXALATE
  6. LORAZEPAM. [Concomitant]
     Active Substance: LORAZEPAM
  7. EUTHYROX 25MCG [Concomitant]
  8. OXYCODONE [Concomitant]
     Active Substance: OXYCODONE
  9. AMLODIPINE [Concomitant]
     Active Substance: AMLODIPINE BESYLATE
  10. LISINOPRIL. [Concomitant]
     Active Substance: LISINOPRIL
  11. ANASTROZOLE. [Concomitant]
     Active Substance: ANASTROZOLE
  12. IBRANCE [Suspect]
     Active Substance: PALBOCICLIB
     Indication: BONE DISORDER
     Route: 048
     Dates: start: 20200430

REACTIONS (4)
  - Abdominal pain upper [None]
  - Vomiting [None]
  - Diarrhoea [None]
  - Retching [None]

NARRATIVE: CASE EVENT DATE: 20201202
